FAERS Safety Report 9393646 (Version 1)
Quarter: 2013Q3

REPORT INFORMATION
  Report Type: Spontaneous
  Country: DE (occurrence: DE)
  Receive Date: 20130710
  Receipt Date: 20130710
  Transmission Date: 20140515
  Serious: Yes (Other)
  Sender: FDA-Public Use
  Company Number: DE-BAYER-2013-082864

PATIENT
  Age: 71 Year
  Sex: Female

DRUGS (4)
  1. ACETYLSALICYLIC ACID({=100 MG) [Suspect]
     Dosage: DAILY DOSE 100 MG
  2. AMOXICILLINE + CLAVULANIC ACID [Interacting]
     Indication: BRONCHITIS
     Dosage: 875/125 MG TWICE A DAY FOR 10 DAYS).
  3. SIMVASTATIN [Concomitant]
     Dosage: DAILY DOSE 20 MG
  4. EZETIMIBE [Interacting]
     Dosage: DAILY DOSE 10 MG

REACTIONS (2)
  - Vestibular disorder [None]
  - Potentiating drug interaction [None]
